FAERS Safety Report 15284412 (Version 1)
Quarter: 2018Q3

REPORT INFORMATION
  Report Type: Spontaneous
  Country: TR (occurrence: TR)
  Receive Date: 20180816
  Receipt Date: 20180816
  Transmission Date: 20181010
  Serious: Yes (Hospitalization)
  Sender: FDA-Public Use
  Company Number: PHHY2018TR067650

PATIENT
  Age: 32 Year
  Sex: Male
  Weight: 77 kg

DRUGS (1)
  1. CLOBETASOL [Suspect]
     Active Substance: CLOBETASOL
     Indication: PSORIASIS
     Dosage: UNK
     Route: 061

REACTIONS (10)
  - Cushing^s syndrome [Unknown]
  - Fatigue [Unknown]
  - Adrenal insufficiency [Unknown]
  - Dry mouth [Unknown]
  - Skin striae [Unknown]
  - Cushingoid [Unknown]
  - Body fat disorder [Unknown]
  - Weight increased [Unknown]
  - Metabolic syndrome [Unknown]
  - Vitamin D deficiency [Unknown]
